FAERS Safety Report 4446945-8 (Version None)
Quarter: 2004Q3

REPORT INFORMATION
  Report Type: 
  Country: None (occurrence: None)
  Receive Date: 20040908
  Receipt Date: 20040825
  Transmission Date: 20050211
  Serious: Yes (Death)
  Sender: FDA-Public Use
  Company Number: 04H-163-0272051-00

PATIENT
  Sex: Male

DRUGS (3)
  1. LIDOCAINE HCL [Suspect]
     Dates: start: 20020801
  2. ROPIVACAINE HYDROCHLORIDE [Suspect]
     Dates: start: 20020801
  3. TRIAMCINOLONE ACETONIDE [Suspect]
     Dates: start: 20020801

REACTIONS (1)
  - DEATH [None]
